FAERS Safety Report 9851093 (Version 1)
Quarter: 2014Q1

REPORT INFORMATION
  Report Type: Spontaneous
  Country: GB (occurrence: GB)
  Receive Date: 20140128
  Receipt Date: 20140128
  Transmission Date: 20141002
  Serious: Yes (Other)
  Sender: FDA-Public Use
  Company Number: GB-ABBVIE-14P-167-1194752-00

PATIENT
  Age: 68 Year
  Sex: Female

DRUGS (1)
  1. EPILIM CHRONO [Suspect]
     Indication: AFFECTIVE DISORDER
     Route: 048
     Dates: start: 20131118, end: 20140112

REACTIONS (6)
  - Fear [Recovered/Resolved with Sequelae]
  - Feeling of despair [Recovered/Resolved with Sequelae]
  - Decreased appetite [Recovered/Resolved with Sequelae]
  - Feeling abnormal [Unknown]
  - Urinary tract infection [Unknown]
  - Weight decreased [Unknown]
